FAERS Safety Report 22537756 (Version 1)
Quarter: 2023Q2

REPORT INFORMATION
  Report Type: Spontaneous
  Country: US (occurrence: US)
  Receive Date: 20230608
  Receipt Date: 20230608
  Transmission Date: 20230721
  Serious: Yes (Other)
  Sender: FDA-Public Use
  Company Number: US-TEVA-2023-US-2896117

PATIENT
  Age: 7 Decade
  Sex: Male

DRUGS (1)
  1. OLANZAPINE [Suspect]
     Active Substance: OLANZAPINE
     Indication: Muscular weakness
     Dosage: FOR 5 CONSECUTIVE NIGHTS
     Route: 048

REACTIONS (2)
  - Hyperammonaemia [Recovered/Resolved]
  - Off label use [Unknown]
